FAERS Safety Report 8337995-X (Version None)
Quarter: 2012Q2

REPORT INFORMATION
  Report Type: 
  Country: None (occurrence: None)
  Receive Date: 20120504
  Receipt Date: 20120426
  Transmission Date: 20120825
  Serious: Yes (Hospitalization)
  Sender: FDA-Public Use
  Company Number: FR-VERTEX PHARMACEUTICALS INC.-000000000000000606

PATIENT
  Sex: Male
  Weight: 85 kg

DRUGS (8)
  1. PEGASYS [Concomitant]
     Indication: HEPATITIS C
     Dates: start: 20110903, end: 20120123
  2. ALDACTONE [Concomitant]
     Indication: ASCITES
     Dates: start: 20111103
  3. PROPRANOLOL [Concomitant]
     Indication: VARICES OESOPHAGEAL
     Dates: start: 20100101
  4. ZOCOR [Concomitant]
     Indication: HYPERCHOLESTEROLAEMIA
     Dates: start: 20111103
  5. INCIVEK [Suspect]
     Indication: HEPATITIS C
     Dosage: DOSAGE FORM: TABLET
     Dates: start: 20110520, end: 20110812
  6. RAMIPRIL [Concomitant]
     Indication: HYPERTENSION
     Dates: start: 20111103
  7. COPEGUS [Concomitant]
     Indication: HEPATITIS C
     Dates: start: 20110903, end: 20120123
  8. ASPIRIN [Concomitant]
     Indication: ANXIETY
     Dates: start: 20111103

REACTIONS (2)
  - ENCEPHALOPATHY [None]
  - SEPSIS [None]
